FAERS Safety Report 19977077 (Version 1)
Quarter: 2021Q4

REPORT INFORMATION
  Report Type: Spontaneous
  Country: US (occurrence: US)
  Receive Date: 20211020
  Receipt Date: 20211020
  Transmission Date: 20220303
  Serious: No
  Sender: FDA-Public Use
  Company Number: US-ALLERGAN-2129917US

PATIENT
  Sex: Male

DRUGS (4)
  1. LINZESS [Suspect]
     Active Substance: LINACLOTIDE
     Indication: Intestinal obstruction
     Dosage: UNK
  2. AMITIZA [Concomitant]
     Active Substance: LUBIPROSTONE
     Indication: Product used for unknown indication
     Dosage: UNK
  3. TRULANCE [Concomitant]
     Active Substance: PLECANATIDE
  4. LACTULOSE [Concomitant]
     Active Substance: LACTULOSE

REACTIONS (2)
  - Off label use [Unknown]
  - Drug ineffective for unapproved indication [Unknown]
